FAERS Safety Report 14597386 (Version 1)
Quarter: 2018Q1

REPORT INFORMATION
  Report Type: Spontaneous
  Country: DK (occurrence: DK)
  Receive Date: 20180305
  Receipt Date: 20180305
  Transmission Date: 20180509
  Serious: Yes (Other)
  Sender: FDA-Public Use
  Company Number: DK-ALIMERA SCIENCES LIMITED-DK-IL-2016-002485

PATIENT

DRUGS (2)
  1. ILUVIEN [Suspect]
     Active Substance: FLUOCINOLONE ACETONIDE
     Indication: UVEITIS
     Dosage: 0.25 ?G, RIGHT EYE
     Route: 031
     Dates: start: 20150216
  2. ILUVIEN [Suspect]
     Active Substance: FLUOCINOLONE ACETONIDE
     Indication: MACULAR OEDEMA
     Dosage: 0.25 ?G, LEFT EYE
     Route: 031
     Dates: start: 20150216

REACTIONS (2)
  - Off label use [Unknown]
  - Juvenile spondyloarthritis [Unknown]

NARRATIVE: CASE EVENT DATE: 20150216
